FAERS Safety Report 24714518 (Version 1)
Quarter: 2024Q4

REPORT INFORMATION
  Report Type: Spontaneous
  Country: FR (occurrence: FR)
  Receive Date: 20241209
  Receipt Date: 20241209
  Transmission Date: 20250115
  Serious: Yes (Hospitalization, Other)
  Sender: ALEXION PHARMACEUTICALS
  Company Number: FR-SA-2024SA359044

PATIENT
  Age: 5 Week
  Weight: 4 kg

DRUGS (4)
  1. BEYFORTUS [Suspect]
     Active Substance: NIRSEVIMAB-ALIP
     Dosage: 50 MG
  2. BEYFORTUS [Suspect]
     Active Substance: NIRSEVIMAB-ALIP
     Dosage: 50 MG
     Route: 002
  3. BEYFORTUS [Suspect]
     Active Substance: NIRSEVIMAB-ALIP
     Dosage: 50 MG
  4. BEYFORTUS [Suspect]
     Active Substance: NIRSEVIMAB-ALIP
     Dosage: 50 MG
     Route: 002

REACTIONS (2)
  - Respiratory syncytial virus bronchiolitis [Unknown]
  - Drug ineffective [Unknown]
